FAERS Safety Report 6921123-9 (Version None)
Quarter: 2010Q3

REPORT INFORMATION
  Report Type: 
  Country: None (occurrence: None)
  Receive Date: 20100804
  Receipt Date: 20090807
  Transmission Date: 20110219
  Serious: No
  Sender: FDA-Public Use
  Company Number: 2009-1848

PATIENT
  Age: 42 Year
  Sex: Male

DRUGS (7)
  1. SOMATULINE DEPOT [Suspect]
     Indication: ACROMEGALY
     Dosage: (120 MF, 1 IN 28 D), INTRAMUSCULAR; (90 MG,NOT REPORTED)
     Route: 030
     Dates: end: 20080430
  2. SOMATULINE DEPOT [Suspect]
     Indication: ACROMEGALY
     Dosage: (120 MF, 1 IN 28 D), INTRAMUSCULAR; (90 MG,NOT REPORTED)
     Route: 030
     Dates: start: 20080801
  3. LISINOPRIL [Concomitant]
  4. PREDNISONE [Concomitant]
  5. SYNTHROID [Concomitant]
  6. DEPO-TESTOSTRONE (TESTOSTERONE CIPIONATE) [Concomitant]
  7. MULTIVITAMIN (MULTIVITAMIN /00831701/) [Concomitant]

REACTIONS (1)
  - INSULIN-LIKE GROWTH FACTOR INCREASED [None]
